FAERS Safety Report 5613319-3 (Version None)
Quarter: 2008Q1

REPORT INFORMATION
  Report Type: 
  Country: None (occurrence: None)
  Receive Date: 20080129
  Receipt Date: 20080121
  Transmission Date: 20080703
  Serious: Yes (Other)
  Sender: FDA-Public Use
  Company Number: 2008BI000723

PATIENT

DRUGS (3)
  1. ZEVALIN [Suspect]
     Indication: NON-HODGKIN'S LYMPHOMA
     Dosage: 45 MBQ/KG; IV
     Route: 042
  2. RITUXIMAB [Concomitant]
  3. ANTIBIOTIC PROPHYLAXIS [Concomitant]

REACTIONS (5)
  - DRUG TOXICITY [None]
  - HAEMATOTOXICITY [None]
  - HEPATIC FAILURE [None]
  - HEPATOTOXICITY [None]
  - NEUTROPENIA [None]
